FAERS Safety Report 19575685 (Version 1)
Quarter: 2021Q3

REPORT INFORMATION
  Report Type: Spontaneous
  Country: US (occurrence: US)
  Receive Date: 20210717
  Receipt Date: 20210717
  Transmission Date: 20211014
  Serious: Yes (Other)
  Sender: FDA-Public Use
  Company Number: None

PATIENT
  Age: 48 Year
  Sex: Female
  Weight: 81 kg

DRUGS (19)
  1. CELECOXIB. [Suspect]
     Active Substance: CELECOXIB
     Indication: INTERVERTEBRAL DISC DEGENERATION
     Dosage: ?          QUANTITY:1 CAPSULE(S);?
     Route: 048
     Dates: start: 20200801, end: 20210712
  2. ZYRTEC [Concomitant]
     Active Substance: CETIRIZINE HYDROCHLORIDE
  3. IMITREX [Concomitant]
     Active Substance: SUMATRIPTAN SUCCINATE
  4. CELECOXIB. [Suspect]
     Active Substance: CELECOXIB
     Indication: TEMPOROMANDIBULAR JOINT SYNDROME
     Dosage: ?          QUANTITY:1 CAPSULE(S);?
     Route: 048
     Dates: start: 20200801, end: 20210712
  5. PROPRANALOL [Concomitant]
     Active Substance: PROPRANOLOL HYDROCHLORIDE
  6. ZANAFLEX [Concomitant]
     Active Substance: TIZANIDINE HYDROCHLORIDE
  7. QVAR [Concomitant]
     Active Substance: BECLOMETHASONE DIPROPIONATE
  8. LEXAPRO [Concomitant]
     Active Substance: ESCITALOPRAM OXALATE
  9. OMEPRAZOLE. [Concomitant]
     Active Substance: OMEPRAZOLE
  10. VENTOLIN [Concomitant]
     Active Substance: ALBUTEROL SULFATE
  11. BCP [Concomitant]
     Active Substance: BENZALKONIUM CHLORIDE
  12. MIRALAX [Concomitant]
     Active Substance: POLYETHYLENE GLYCOL 3350
  13. CELECOXIB. [Suspect]
     Active Substance: CELECOXIB
     Indication: FIBROMYALGIA
     Dosage: ?          QUANTITY:1 CAPSULE(S);?
     Route: 048
     Dates: start: 20200801, end: 20210712
  14. SINGULAIR [Concomitant]
     Active Substance: MONTELUKAST SODIUM
  15. PSEUDOEPHEDRINE. [Concomitant]
     Active Substance: PSEUDOEPHEDRINE HYDROCHLORIDE
  16. ADVIL [Concomitant]
     Active Substance: IBUPROFEN
  17. FLONASE [Concomitant]
     Active Substance: FLUTICASONE PROPIONATE
  18. TYLENOL [Concomitant]
     Active Substance: ACETAMINOPHEN
  19. PEOCID [Concomitant]

REACTIONS (1)
  - Asthma [None]

NARRATIVE: CASE EVENT DATE: 20210710
